FAERS Safety Report 19559963 (Version 1)
Quarter: 2021Q3

REPORT INFORMATION
  Report Type: Spontaneous
  Country: US (occurrence: US)
  Receive Date: 20210716
  Receipt Date: 20210716
  Transmission Date: 20211014
  Serious: Yes (Other)
  Sender: FDA-Public Use
  Company Number: US-LUPIN PHARMACEUTICALS INC.-2021-12124

PATIENT
  Age: 10 Year
  Sex: Female

DRUGS (20)
  1. FLUDARABINE [Concomitant]
     Active Substance: FLUDARABINE PHOSPHATE
     Indication: BONE MARROW CONDITIONING REGIMEN
     Dosage: UNK
     Route: 065
  2. DECITABINE. [Suspect]
     Active Substance: DECITABINE
     Indication: LEUKAEMIA RECURRENT
  3. CLOFARABINE. [Suspect]
     Active Substance: CLOFARABINE
     Indication: ACUTE MYELOID LEUKAEMIA
     Dosage: UNK
     Route: 065
  4. GEMTUZUMAB [Suspect]
     Active Substance: GEMTUZUMAB OZOGAMICIN
     Indication: ACUTE MYELOID LEUKAEMIA
     Dosage: UNK
     Route: 065
  5. TOPOTECAN [Suspect]
     Active Substance: TOPOTECAN HYDROCHLORIDE
     Indication: LEUKAEMIA RECURRENT
  6. GEMTUZUMAB [Suspect]
     Active Substance: GEMTUZUMAB OZOGAMICIN
     Indication: KMT2A GENE MUTATION
  7. VINORELBINE [Suspect]
     Active Substance: VINORELBINE TARTRATE
     Indication: ACUTE MYELOID LEUKAEMIA
     Dosage: UNK
     Route: 065
  8. VINORELBINE [Suspect]
     Active Substance: VINORELBINE TARTRATE
     Indication: KMT2A GENE MUTATION
  9. THIOTEPA. [Suspect]
     Active Substance: THIOTEPA
     Indication: LEUKAEMIA RECURRENT
  10. DECITABINE. [Suspect]
     Active Substance: DECITABINE
     Indication: ACUTE MYELOID LEUKAEMIA
     Dosage: UNK
     Route: 065
  11. CLOFARABINE. [Suspect]
     Active Substance: CLOFARABINE
     Indication: LEUKAEMIA RECURRENT
  12. CLOFARABINE. [Suspect]
     Active Substance: CLOFARABINE
     Indication: KMT2A GENE MUTATION
  13. BUSULFAN. [Concomitant]
     Active Substance: BUSULFAN
     Indication: BONE MARROW CONDITIONING REGIMEN
     Dosage: UNK
     Route: 065
  14. DECITABINE. [Suspect]
     Active Substance: DECITABINE
     Indication: KMT2A GENE MUTATION
  15. TOPOTECAN [Suspect]
     Active Substance: TOPOTECAN HYDROCHLORIDE
     Indication: ACUTE MYELOID LEUKAEMIA
     Dosage: UNK
     Route: 065
  16. GEMTUZUMAB [Suspect]
     Active Substance: GEMTUZUMAB OZOGAMICIN
     Indication: LEUKAEMIA RECURRENT
  17. VINORELBINE [Suspect]
     Active Substance: VINORELBINE TARTRATE
     Indication: LEUKAEMIA RECURRENT
  18. THIOTEPA. [Suspect]
     Active Substance: THIOTEPA
     Indication: KMT2A GENE MUTATION
  19. TOPOTECAN [Suspect]
     Active Substance: TOPOTECAN HYDROCHLORIDE
     Indication: KMT2A GENE MUTATION
  20. THIOTEPA. [Suspect]
     Active Substance: THIOTEPA
     Indication: ACUTE MYELOID LEUKAEMIA
     Dosage: UNK
     Route: 065

REACTIONS (1)
  - Drug ineffective [Unknown]
